FAERS Safety Report 15315156 (Version 4)
Quarter: 2018Q4

REPORT INFORMATION
  Report Type: Spontaneous
  Country: US (occurrence: US)
  Receive Date: 20180824
  Receipt Date: 20181019
  Transmission Date: 20190204
  Serious: Yes (Life-Threatening, Other)
  Sender: FDA-Public Use
  Company Number: US-PFIZER INC-2018336621

PATIENT
  Age: 9 Year
  Sex: Male

DRUGS (6)
  1. HYDROCORTISONE SODIUM SUCCINATE [Suspect]
     Active Substance: HYDROCORTISONE SODIUM SUCCINATE
     Indication: DIFFUSE LARGE B-CELL LYMPHOMA STAGE III
     Dosage: 15 MG, CYCLIC (15 MG IT, DAYS 2 AND 6)
     Route: 037
  2. CYCLOPHOSPHAMIDE. [Suspect]
     Active Substance: CYCLOPHOSPHAMIDE
     Indication: DIFFUSE LARGE B-CELL LYMPHOMA STAGE III
     Dosage: 125 MG/M2, CYCLIC (Q12 HOURS, DAYS 2-4, CYCLE 2,3,6)
     Route: 042
  3. PREDNISONE. [Suspect]
     Active Substance: PREDNISONE
     Indication: DIFFUSE LARGE B-CELL LYMPHOMA STAGE III
     Dosage: 60 MG/M2, CYCLIC (DAYS 1-7, CYCLE 2,3,6)
     Route: 048
  4. DOXORUBICIN HCL [Suspect]
     Active Substance: DOXORUBICIN HYDROCHLORIDE
     Indication: DIFFUSE LARGE B-CELL LYMPHOMA STAGE III
     Dosage: 30 MG/M2, CYCLIC (DAY 2,CYCLE 2, 3, 6)
     Route: 042
  5. VINBLASTINE [Suspect]
     Active Substance: VINBLASTINE
     Indication: DIFFUSE LARGE B-CELL LYMPHOMA STAGE III
     Dosage: 3 MG/M2, CYCLIC (DAY 1, CYCLE 2,3)
     Route: 042
  6. METHOTREXATE SODIUM. [Suspect]
     Active Substance: METHOTREXATE SODIUM
     Indication: DIFFUSE LARGE B-CELL LYMPHOMA STAGE III
     Dosage: 1.5 G/M2, CYCLIC (DAY 1, CYCLE 2, 3, 6)
     Route: 042

REACTIONS (4)
  - Mucosal inflammation [Unknown]
  - Incorrect route of product administration [Unknown]
  - Neutropenia [Unknown]
  - Pyrexia [Unknown]
